FAERS Safety Report 6338533-3 (Version None)
Quarter: 2009Q3

REPORT INFORMATION
  Report Type: 
  Country: None (occurrence: None)
  Receive Date: 20090901
  Receipt Date: 20090513
  Transmission Date: 20100115
  Serious: Yes (Other)
  Sender: FDA-Public Use
  Company Number: 8048607

PATIENT
  Age: 8 Year
  Sex: Male
  Weight: 28.8 kg

DRUGS (1)
  1. EQUASYM [Suspect]
     Indication: ATTENTION DEFICIT/HYPERACTIVITY DISORDER
     Dosage: 20 MG 1/D; PO
     Route: 048
     Dates: start: 20090101, end: 20090301

REACTIONS (2)
  - CONTUSION [None]
  - DRY SKIN [None]
